FAERS Safety Report 14923973 (Version 1)
Quarter: 2018Q2

REPORT INFORMATION
  Report Type: Other
  Country: ES (occurrence: ES)
  Receive Date: 20180522
  Receipt Date: 20180522
  Transmission Date: 20180711
  Serious: Yes (Death, Hospitalization)
  Sender: FDA-Public Use
  Company Number: ES-ACTELION-A-CH2018-172447

PATIENT
  Age: 49 Year
  Sex: Male

DRUGS (4)
  1. CYCLOPHOSPHAMIDE. [Suspect]
     Active Substance: CYCLOPHOSPHAMIDE
     Indication: SKIN ULCER
     Dosage: 1000 MG, UNK
     Route: 065
  2. BOSENTAN. [Suspect]
     Active Substance: BOSENTAN
     Indication: SKIN ULCER
     Dosage: 62.5 MG, BID
     Route: 048
  3. PREDNISOLONE. [Concomitant]
     Active Substance: PREDNISOLONE
     Dosage: 1 MG/KG, QD
     Route: 048
  4. METHOTREXATE. [Concomitant]
     Active Substance: METHOTREXATE
     Dosage: 10 MG, Q1WEEK

REACTIONS (7)
  - Immunosuppression [Unknown]
  - Toxic epidermal necrolysis [Recovered/Resolved]
  - Interstitial lung disease [Not Recovered/Not Resolved]
  - Epidermal necrosis [Recovered/Resolved]
  - Respiratory failure [Fatal]
  - Rash [Recovered/Resolved]
  - Dyspnoea [Not Recovered/Not Resolved]
